FAERS Safety Report 13507340 (Version 1)
Quarter: 2017Q2

REPORT INFORMATION
  Report Type: Other
  Country: GB (occurrence: GB)
  Receive Date: 20170503
  Receipt Date: 20170503
  Transmission Date: 20170830
  Serious: Yes (Other)
  Sender: FDA-Public Use
  Company Number: GB-REGULIS-2020147

PATIENT
  Age: 47 Year
  Sex: Female

DRUGS (2)
  1. PROVAYBLUE [Suspect]
     Active Substance: METHYLENE BLUE
     Indication: PRODUCT USED FOR UNKNOWN INDICATION
     Route: 042
  2. POVIDONE-IODINE. [Concomitant]
     Active Substance: POVIDONE-IODINE
     Route: 061

REACTIONS (5)
  - Rash pustular [None]
  - Blister [None]
  - Rash erythematous [None]
  - Rash [None]
  - Photosensitivity reaction [Recovered/Resolved]
